FAERS Safety Report 18339976 (Version 1)
Quarter: 2020Q4

REPORT INFORMATION
  Report Type: Report from Study
  Country: US (occurrence: US)
  Receive Date: 20201002
  Receipt Date: 20201002
  Transmission Date: 20210113
  Serious: Yes (Hospitalization, Disabling, Other)
  Sender: FDA-Public Use
  Company Number: US-JNJFOC-A-US2018-181678

PATIENT
  Age: 66 Year
  Sex: Male

DRUGS (4)
  1. OPSUMIT [Suspect]
     Active Substance: MACITENTAN
     Indication: PULMONARY ARTERIAL HYPERTENSION
     Dosage: 10 MG, QD
     Route: 048
     Dates: start: 20151029
  2. CALCIUM FOLINATE W/FLUOROURACIL/IRI/08193001/ [Suspect]
     Active Substance: FLUOROURACIL\IRINOTECAN\LEUCOVORIN\OXALIPLATIN
     Indication: NEOPLASM MALIGNANT
     Dates: start: 2018
  3. DURVALUMAB. [Suspect]
     Active Substance: DURVALUMAB
     Indication: NEOPLASM MALIGNANT
     Dates: start: 2019
  4. CABOZANTINIB [Suspect]
     Active Substance: CABOZANTINIB
     Indication: NEOPLASM MALIGNANT
     Dates: start: 2019

REACTIONS (15)
  - Neoplasm malignant [Unknown]
  - Amnesia [Not Recovered/Not Resolved]
  - Hypertension [Unknown]
  - Catheterisation cardiac [Unknown]
  - Loss of personal independence in daily activities [Unknown]
  - Headache [Unknown]
  - Balance disorder [Unknown]
  - Vision blurred [Unknown]
  - Eye disorder [Unknown]
  - Malaise [Unknown]
  - Product dose omission issue [Unknown]
  - Dyspnoea [Unknown]
  - Dyspnoea exertional [Unknown]
  - Cardiac discomfort [Unknown]
  - Myalgia [Unknown]

NARRATIVE: CASE EVENT DATE: 20200302
